FAERS Safety Report 11070597 (Version 1)
Quarter: 2015Q2

REPORT INFORMATION
  Report Type: Report from Study
  Country: HU (occurrence: HU)
  Receive Date: 20150427
  Receipt Date: 20150427
  Transmission Date: 20150821
  Serious: Yes (Death, Life-Threatening, Hospitalization, Other)
  Sender: FDA-Public Use
  Company Number: HU-BRISTOL-MYERS SQUIBB COMPANY-16046914

PATIENT
  Age: 76 Year
  Sex: Male

DRUGS (1)
  1. IPILIMUMAB [Suspect]
     Active Substance: IPILIMUMAB
     Indication: PROSTATE CANCER
     Dosage: 1DF=160ML  10MG/KG
     Route: 042
     Dates: start: 20110706, end: 20110817

REACTIONS (7)
  - Malignant neoplasm progression [Fatal]
  - Dehydration [Fatal]
  - Septic shock [Fatal]
  - Diarrhoea [Recovered/Resolved]
  - Pyrexia [Fatal]
  - Pneumonitis [Fatal]
  - Dyspnoea [Fatal]

NARRATIVE: CASE EVENT DATE: 20110904
